FAERS Safety Report 15272691 (Version 1)
Quarter: 2018Q3

REPORT INFORMATION
  Report Type: Spontaneous
  Country: CA (occurrence: CA)
  Receive Date: 20180813
  Receipt Date: 20180813
  Transmission Date: 20181010
  Serious: Yes (Other)
  Sender: FDA-Public Use
  Company Number: CA-BAYER-2018-146215

PATIENT
  Age: 45 Year
  Sex: Female
  Weight: 58.96 kg

DRUGS (1)
  1. MIRENA [Suspect]
     Active Substance: LEVONORGESTREL
     Indication: MENOPAUSAL SYMPTOMS
     Dosage: 20 MCG/24HR, CONT
     Route: 015

REACTIONS (5)
  - Impaired work ability [Recovering/Resolving]
  - Suicidal ideation [Recovering/Resolving]
  - Anxiety [Recovering/Resolving]
  - Mood swings [Recovering/Resolving]
  - Depression [Recovering/Resolving]
